FAERS Safety Report 5917261-X (Version None)
Quarter: 2008Q4

REPORT INFORMATION
  Report Type: 
  Country: None (occurrence: None)
  Receive Date: 20081014
  Receipt Date: 20081001
  Transmission Date: 20090506
  Serious: Yes (Hospitalization)
  Sender: FDA-Public Use
  Company Number: US-ELI_LILLY_AND_COMPANY-US200810000341

PATIENT
  Sex: Male

DRUGS (1)
  1. FORTEO [Suspect]
     Dates: start: 20080101, end: 20080101

REACTIONS (6)
  - DECREASED APPETITE [None]
  - FALL [None]
  - FATIGUE [None]
  - HUMERUS FRACTURE [None]
  - MUSCULAR WEAKNESS [None]
  - NAUSEA [None]
